FAERS Safety Report 9271780 (Version 1)
Quarter: 2013Q2

REPORT INFORMATION
  Report Type: Spontaneous
  Country: GB (occurrence: GB)
  Receive Date: 20130506
  Receipt Date: 20130506
  Transmission Date: 20140414
  Serious: Yes (Other)
  Sender: FDA-Public Use
  Company Number: GB-AMGEN-GBRSP2013030474

PATIENT
  Age: 71 Year
  Sex: Male
  Weight: 66 kg

DRUGS (7)
  1. DENOSUMAB [Suspect]
     Indication: PRODUCT USED FOR UNKNOWN INDICATION
     Dosage: UNK
     Route: 030
     Dates: start: 2011
  2. ASPIRIN [Concomitant]
     Dosage: UNK
     Dates: start: 20121105
  3. BISOPROLOL [Concomitant]
     Dosage: UNK
     Dates: start: 20121105
  4. CALCICHEW D3 [Concomitant]
     Dosage: UNK
     Dates: start: 20121105
  5. CO-DYDRAMOL [Concomitant]
     Dosage: UNK
     Dates: start: 20111105
  6. PARACETAMOL [Concomitant]
     Dosage: UNK
     Dates: start: 20121219, end: 20130118
  7. ROSUVASTATIN [Concomitant]
     Dosage: UNK
     Dates: start: 20121105

REACTIONS (3)
  - Pain in jaw [Unknown]
  - Loose tooth [Unknown]
  - Osteonecrosis of jaw [Unknown]
